FAERS Safety Report 11390630 (Version 1)
Quarter: 2015Q3

REPORT INFORMATION
  Report Type: Spontaneous
  Country: US (occurrence: US)
  Receive Date: 20150818
  Receipt Date: 20150818
  Transmission Date: 20151125
  Serious: No
  Sender: FDA-Public Use
  Company Number: US-ROCHE-1296728

PATIENT
  Sex: Male

DRUGS (14)
  1. RIBAVIRIN. [Suspect]
     Active Substance: RIBAVIRIN
     Indication: CHRONIC HEPATITIS C
     Route: 065
     Dates: start: 1997
  2. RIBASPHERE [Suspect]
     Active Substance: RIBAVIRIN
     Route: 048
  3. PEGASYS [Suspect]
     Active Substance: PEGINTERFERON ALFA-2A
     Route: 065
     Dates: start: 2002
  4. PEGASYS [Suspect]
     Active Substance: PEGINTERFERON ALFA-2A
     Route: 058
     Dates: start: 20131101
  5. RIBAVIRIN. [Suspect]
     Active Substance: RIBAVIRIN
     Route: 065
  6. PEGASYS [Suspect]
     Active Substance: PEGINTERFERON ALFA-2A
     Route: 065
     Dates: start: 2011
  7. RIBASPHERE [Suspect]
     Active Substance: RIBAVIRIN
     Route: 048
  8. PEGASYS [Suspect]
     Active Substance: PEGINTERFERON ALFA-2A
     Indication: CHRONIC HEPATITIS C
     Route: 065
     Dates: start: 1997
  9. RIBAVIRIN. [Suspect]
     Active Substance: RIBAVIRIN
     Route: 065
     Dates: start: 2002
  10. RIBAVIRIN. [Suspect]
     Active Substance: RIBAVIRIN
     Route: 065
     Dates: start: 2011
  11. RIBASPHERE [Suspect]
     Active Substance: RIBAVIRIN
     Indication: CHRONIC HEPATITIS C
     Dosage: IN DVIDED DOSAGE
     Route: 048
     Dates: start: 20131101
  12. INCIVEK [Suspect]
     Active Substance: TELAPREVIR
     Indication: CHRONIC HEPATITIS C
     Route: 065
     Dates: start: 20131101
  13. INCIVEK [Suspect]
     Active Substance: TELAPREVIR
     Route: 065
     Dates: start: 20140414
  14. PEGASYS [Suspect]
     Active Substance: PEGINTERFERON ALFA-2A
     Route: 058
     Dates: end: 20140414

REACTIONS (22)
  - Headache [Unknown]
  - Nausea [Unknown]
  - Dyspnoea exertional [Unknown]
  - Cardiac murmur [Not Recovered/Not Resolved]
  - Pyrexia [Unknown]
  - Chest pain [Unknown]
  - Haemorrhoids [Unknown]
  - Pruritus [Unknown]
  - Wheezing [Unknown]
  - Dyspnoea [Unknown]
  - Flatulence [Unknown]
  - Eating disorder [Unknown]
  - Blood test abnormal [Unknown]
  - Feeling cold [Unknown]
  - Tension headache [Unknown]
  - Tooth extraction [Unknown]
  - Gingival disorder [Unknown]
  - Eye pain [Unknown]
  - Full blood count decreased [Unknown]
  - Insomnia [Unknown]
  - Ammonia increased [Recovering/Resolving]
  - Tooth loss [Unknown]
